FAERS Safety Report 13739719 (Version 1)
Quarter: 2017Q3

REPORT INFORMATION
  Report Type: Spontaneous
  Country: BR (occurrence: BR)
  Receive Date: 20170710
  Receipt Date: 20170710
  Transmission Date: 20171127
  Serious: Yes (Other)
  Sender: FDA-Public Use
  Company Number: PHHY2014BR146988

PATIENT
  Age: 83 Year
  Sex: Male
  Weight: 70 kg

DRUGS (8)
  1. HYDERGIN [Suspect]
     Active Substance: ERGOLOID MESYLATES
     Indication: MYOCARDIAL INFARCTION
  2. HYDERGIN [Suspect]
     Active Substance: ERGOLOID MESYLATES
     Indication: OFF LABEL USE
  3. HYDERGIN [Suspect]
     Active Substance: ERGOLOID MESYLATES
     Indication: DEMENTIA
     Dosage: 6 ML, Q8H
     Route: 048
  4. CARVEDILOL. [Concomitant]
     Active Substance: CARVEDILOL
     Indication: PRODUCT USED FOR UNKNOWN INDICATION
     Dosage: 1 DF, QD
     Route: 065
  5. AAS [Concomitant]
     Active Substance: ASPIRIN
     Indication: PRODUCT USED FOR UNKNOWN INDICATION
     Dosage: 1 DF, QD
     Route: 065
  6. MEMANTINE HYDROCHLORIDE. [Concomitant]
     Active Substance: MEMANTINE HYDROCHLORIDE
     Indication: DEMENTIA
     Dosage: 1 DF, QD
     Route: 065
  7. CLOPIDOGREL BISULFATE. [Concomitant]
     Active Substance: CLOPIDOGREL BISULFATE
     Indication: PRODUCT USED FOR UNKNOWN INDICATION
     Dosage: 1 DF, QD
     Route: 065
  8. SPIRONOLACTONE. [Concomitant]
     Active Substance: SPIRONOLACTONE
     Indication: PERIPHERAL SWELLING
     Dosage: 1 DF, QD
     Route: 065

REACTIONS (4)
  - Dysphagia [Not Recovered/Not Resolved]
  - Communication disorder [Not Recovered/Not Resolved]
  - Apallic syndrome [Unknown]
  - Dysphagia [Unknown]

NARRATIVE: CASE EVENT DATE: 20141107
